APPROVED DRUG PRODUCT: COARTEM
Active Ingredient: ARTEMETHER; LUMEFANTRINE
Strength: 20MG;120MG
Dosage Form/Route: TABLET;ORAL
Application: N022268 | Product #001
Applicant: NOVARTIS PHARMACEUTICALS CORP
Approved: Apr 7, 2009 | RLD: Yes | RS: Yes | Type: RX